FAERS Safety Report 4638887-X (Version None)
Quarter: 2005Q2

REPORT INFORMATION
  Report Type: 
  Country: None (occurrence: None)
  Receive Date: 20050414
  Receipt Date: 20050414
  Transmission Date: 20051028
  Serious: Yes (Other)
  Sender: FDA-Public Use
  Company Number: None

PATIENT
  Sex: Male

DRUGS (2)
  1. NEURONTIN [Suspect]
     Indication: COMPLEX PARTIAL SEIZURES
     Dosage: 600 MG  ONCE PO QHS
     Route: 048
  2. NEURONTIN [Suspect]
     Indication: CONVULSION
     Dosage: 600 MG  ONCE PO QHS
     Route: 048

REACTIONS (2)
  - CONVULSION [None]
  - PHARMACEUTICAL PRODUCT COMPLAINT [None]
